FAERS Safety Report 5214890-6 (Version None)
Quarter: 2007Q1

REPORT INFORMATION
  Report Type: 
  Country: None (occurrence: None)
  Receive Date: 20061108
  Receipt Date: 20050913
  Transmission Date: 20070707
  Serious: Yes (Other)
  Sender: FDA-Public Use
  Company Number: PHEH2005US10169

PATIENT
  Sex: Female

DRUGS (6)
  1. ESTRADERM [Suspect]
     Dosage: TRANSDERMAL
     Route: 062
  2. PREMPRO [Suspect]
  3. PREMARIN [Suspect]
  4. CYCRIN [Suspect]
  5. ESTROGENS SOL/INJ [Concomitant]
  6. MEDROXYPROGESTERONE ACETATE [Suspect]

REACTIONS (8)
  - ANXIETY [None]
  - BREAST CANCER [None]
  - EMOTIONAL DISORDER [None]
  - LYMPHADENECTOMY [None]
  - MASTECTOMY [None]
  - PAIN [None]
  - PHYSICAL DISABILITY [None]
  - SCAR [None]
